FAERS Safety Report 8966116 (Version 2)
Quarter: 2012Q4

REPORT INFORMATION
  Report Type: 
  Country: FI (occurrence: FI)
  Receive Date: 20121217
  Receipt Date: 20121224
  Transmission Date: 20130627
  Serious: Yes (Hospitalization)
  Sender: FDA-Public Use
  Company Number: FI-AMGEN-FINSP2012080139

PATIENT
  Age: 66 Year
  Sex: Male
  Weight: 85 kg

DRUGS (8)
  1. VECTIBIX [Suspect]
     Indication: PRODUCT USED FOR UNKNOWN INDICATION
     Dosage: 738 mg, UNK
     Route: 042
     Dates: start: 20100526, end: 20100616
  2. BEVACIZUMAB [Suspect]
     Indication: COLORECTAL CANCER METASTATIC
     Dosage: 638 mg, 1 in 21 days
     Route: 042
     Dates: start: 20091127
  3. OXALIPLATIN [Suspect]
     Indication: COLORECTAL CANCER METASTATIC
     Dosage: 270 mg, 1 in 21 days
     Dates: start: 20091127
  4. OXALIPLATIN [Suspect]
     Dosage: 202 mg, 1 in 21 days
     Dates: start: 20091229
  5. FLUOROURACIL [Suspect]
     Indication: COLORECTAL CANCER METASTATIC
     Dosage: UNK
  6. CAPECITABINE [Suspect]
     Indication: COLORECTAL CANCER METASTATIC
     Dosage: 2000 mg, bid
     Route: 048
     Dates: start: 20091127, end: 20091211
  7. CAPECITABINE [Suspect]
     Dosage: 2500 mg, bid
     Route: 048
     Dates: start: 20091229
  8. IRINOTECAN [Suspect]
     Indication: COLORECTAL CANCER METASTATIC
     Dosage: 500 mg, UNK
     Route: 042
     Dates: start: 20100526, end: 20100616

REACTIONS (2)
  - Diarrhoea [Recovered/Resolved]
  - Sinusitis [Recovered/Resolved]
